FAERS Safety Report 4414016-2 (Version None)
Quarter: 2004Q3

REPORT INFORMATION
  Report Type: 
  Country: None (occurrence: None)
  Receive Date: 20040728
  Receipt Date: 20040726
  Transmission Date: 20050211
  Serious: Yes (Hospitalization)
  Sender: FDA-Public Use
  Company Number: THQ2004A00692

PATIENT
  Age: 42 Year
  Sex: Female

DRUGS (1)
  1. PROSTAP (LEUPROLIDE ACETATE) (UNKNOWN) [Suspect]
     Route: 058

REACTIONS (1)
  - INTRACRANIAL PRESSURE INCREASED [None]
